FAERS Safety Report 6148446-8 (Version None)
Quarter: 2009Q2

REPORT INFORMATION
  Report Type: 
  Country: None (occurrence: None)
  Receive Date: 20090408
  Receipt Date: 20090327
  Transmission Date: 20091009
  Serious: Yes (Other)
  Sender: FDA-Public Use
  Company Number: US-PFIZER INC-2009156258

PATIENT
  Age: 41 Year
  Sex: Female
  Weight: 63.946 kg

DRUGS (1)
  1. CHANTIX [Suspect]
     Indication: TOBACCO ABUSE
     Dosage: 0.25 MG, 2X/DAY
     Dates: start: 20070725, end: 20080925

REACTIONS (5)
  - DEPRESSION [None]
  - GASTROINTESTINAL DISORDER [None]
  - INCORRECT DRUG ADMINISTRATION DURATION [None]
  - MOOD SWINGS [None]
  - SUICIDAL IDEATION [None]
